FAERS Safety Report 7717470-3 (Version None)
Quarter: 2011Q3

REPORT INFORMATION
  Report Type: 
  Country: None (occurrence: None)
  Receive Date: 20110830
  Receipt Date: 20110523
  Transmission Date: 20111222
  Serious: No
  Sender: FDA-Public Use
  Company Number: US-KINGPHARMUSA00001-K201100492

PATIENT
  Age: 37 Year
  Sex: Female

DRUGS (1)
  1. EMBEDA [Suspect]
     Indication: PAIN
     Dosage: 30 MG, BID
     Route: 048
     Dates: start: 20100101, end: 20110331

REACTIONS (2)
  - ALOPECIA [None]
  - TRICHORRHEXIS [None]
